FAERS Safety Report 4871798-3 (Version None)
Quarter: 2006Q1

REPORT INFORMATION
  Report Type: 
  Country: None (occurrence: None)
  Receive Date: 20060104
  Receipt Date: 20051027
  Transmission Date: 20060701
  Serious: Yes (Life-Threatening, Hospitalization)
  Sender: FDA-Public Use
  Company Number: JP-JPN-A20052600

PATIENT
  Age: 59 Year
  Sex: Female
  Weight: 54 kg

DRUGS (3)
  1. ZANTAC [Suspect]
     Indication: GASTRITIS
     Dosage: 150MG TWICE PER DAY
     Route: 048
     Dates: start: 20050923, end: 20051001
  2. GASTER [Suspect]
     Indication: GASTRITIS
     Dosage: 10MG TWICE PER DAY
     Route: 048
     Dates: start: 20050909, end: 20050923
  3. ALLELOCK [Concomitant]
     Dosage: 10MG PER DAY
     Route: 048

REACTIONS (4)
  - ATRIOVENTRICULAR BLOCK COMPLETE [None]
  - DYSPNOEA [None]
  - HEART RATE ABNORMAL [None]
  - MALAISE [None]
